FAERS Safety Report 21199441 (Version 1)
Quarter: 2022Q3

REPORT INFORMATION
  Report Type: Spontaneous
  Country: US (occurrence: None)
  Receive Date: 20220811
  Receipt Date: 20220811
  Transmission Date: 20221027
  Serious: No
  Sender: FDA-Public Use
  Company Number: 2022A015747

PATIENT
  Age: 34724 Day
  Sex: Male
  Weight: 59 kg

DRUGS (2)
  1. BUDESONIDE\FORMOTEROL FUMARATE DIHYDRATE [Suspect]
     Active Substance: BUDESONIDE\FORMOTEROL FUMARATE DIHYDRATE
     Indication: Chronic obstructive pulmonary disease
     Dosage: 160/4.5 MCG, 120 INHALATIONS, 2 INHALATIONS TWICE A DAY
     Route: 055
  2. SYMBICORT [Concomitant]
     Active Substance: BUDESONIDE\FORMOTEROL FUMARATE DIHYDRATE
     Indication: Chronic obstructive pulmonary disease
     Route: 058

REACTIONS (4)
  - Body height decreased [Unknown]
  - Device use issue [Unknown]
  - Device malfunction [Unknown]
  - Insurance issue [Unknown]

NARRATIVE: CASE EVENT DATE: 20220106
